FAERS Safety Report 18214053 (Version 1)
Quarter: 2020Q3

REPORT INFORMATION
  Report Type: Spontaneous
  Country: FR (occurrence: FR)
  Receive Date: 20200831
  Receipt Date: 20200831
  Transmission Date: 20201103
  Serious: Yes (Hospitalization)
  Sender: FDA-Public Use
  Company Number: NVSC2020FR235429

PATIENT
  Age: 96 Year
  Sex: Female
  Weight: 50.3 kg

DRUGS (9)
  1. VERAPAMIL [Suspect]
     Active Substance: VERAPAMIL HYDROCHLORIDE
     Indication: HYPERTENSION
     Dosage: 1 DF, QD (240 MG LP PAR JOUR)
     Route: 048
     Dates: end: 20200612
  2. BISOPROLOL [Suspect]
     Active Substance: BISOPROLOL
     Indication: HYPERTENSION
     Dosage: 2 DF, QD
     Route: 048
  3. NAFTILUX [Suspect]
     Active Substance: NAFRONYL OXALATE
     Indication: THROMBOANGIITIS OBLITERANS
     Dosage: 2 DF, QD
     Route: 048
     Dates: end: 20200612
  4. FLUOXETINE [Suspect]
     Active Substance: FLUOXETINE HYDROCHLORIDE
     Indication: DEPRESSION
     Dosage: 1 DF, QD (1 COMPRIM? ? 20 MG 1 FOIS PAR JOUR)
     Route: 048
     Dates: end: 20200612
  5. DAFALGAN [Suspect]
     Active Substance: ACETAMINOPHEN
     Indication: PAIN
     Dosage: 6 DF, QD (2 X 3 PAR JOUR)
     Route: 048
  6. MODURETIC 5?50 [Suspect]
     Active Substance: AMILORIDE HYDROCHLORIDE\HYDROCHLOROTHIAZIDE
     Indication: HYPERTENSION
     Dosage: 0.5 DF, QD (1/2 LE MATIN)
     Route: 048
     Dates: end: 20200612
  7. DICLOFENAC [Suspect]
     Active Substance: DICLOFENAC
     Indication: PAIN
     Dosage: UNK
     Route: 061
  8. DIFFU K [Suspect]
     Active Substance: POTASSIUM CHLORIDE
     Indication: HYPOKALAEMIA
     Dosage: 2 DF, QD
     Route: 048
  9. DUOPLAVIN [Suspect]
     Active Substance: ASPIRIN\CLOPIDOGREL
     Indication: TRANSIENT ISCHAEMIC ATTACK
     Dosage: 1 DF, QD
     Route: 048
     Dates: start: 2018, end: 20200614

REACTIONS (1)
  - Orthostatic hypotension [Recovered/Resolved]

NARRATIVE: CASE EVENT DATE: 202006
